FAERS Safety Report 9504105 (Version 1)
Quarter: 2013Q3

REPORT INFORMATION
  Report Type: Spontaneous
  Country: US (occurrence: US)
  Receive Date: 20130906
  Receipt Date: 20130906
  Transmission Date: 20140515
  Serious: Yes (Other)
  Sender: FDA-Public Use
  Company Number: US-BAYER-2013-106660

PATIENT
  Age: 45 Year
  Sex: Female
  Weight: 84.81 kg

DRUGS (12)
  1. YAZ [Suspect]
     Indication: CONTRACEPTION
  2. YAZ [Suspect]
     Indication: POLYCYSTIC OVARIES
  3. YASMIN [Suspect]
     Indication: POLYCYSTIC OVARIES
  4. HYDROCHLOROTHIAZIDE [Concomitant]
     Dosage: 12.5 MG, UNK
     Dates: start: 2006, end: 20090810
  5. FEXOFENADINE [Concomitant]
     Dosage: 180 MG, UNK
     Route: 048
     Dates: start: 2006, end: 20090810
  6. LISINOPRIL [Concomitant]
     Dosage: 5 MG, UNK
     Route: 048
     Dates: start: 20071109, end: 20090810
  7. ELAVIL [Concomitant]
     Dosage: 25 MG, 1 AT BEDTIME
     Route: 048
  8. LIDEX [Concomitant]
     Dosage: 0.05 %, UNK
     Route: 061
  9. MICROZIDE [Concomitant]
     Dosage: 12.5 MG, 1 DAILY
     Route: 048
  10. B-COMPLEX [Concomitant]
     Route: 048
  11. EXCEDRIN [CAFFEINE,PARACETAMOL] [Concomitant]
     Indication: MIGRAINE
  12. EXCEDRIN [CAFFEINE,PARACETAMOL] [Concomitant]
     Indication: HEADACHE

REACTIONS (1)
  - Deep vein thrombosis [None]
